FAERS Safety Report 7940409-2 (Version None)
Quarter: 2011Q4

REPORT INFORMATION
  Report Type: 
  Country: None (occurrence: None)
  Receive Date: 20111127
  Receipt Date: 20111116
  Transmission Date: 20120403
  Serious: Yes (Death, Hospitalization, Other)
  Sender: FDA-Public Use
  Company Number: SE-CELGENEUS-150-21880-11080997

PATIENT
  Sex: Male
  Weight: 111 kg

DRUGS (4)
  1. REVLIMID [Suspect]
     Indication: MULTIPLE MYELOMA
     Route: 048
     Dates: start: 20110627, end: 20110725
  2. VALTREX [Concomitant]
     Indication: INFECTION PROPHYLAXIS
     Dosage: 1000 MILLIGRAM
     Route: 065
  3. BACTRIM [Concomitant]
     Indication: INFECTION PROPHYLAXIS
     Route: 065
  4. OXYCONTIN [Concomitant]
     Dosage: 20 MILLIGRAM

REACTIONS (2)
  - SEPSIS [None]
  - COLON CANCER [None]
